FAERS Safety Report 9862796 (Version 2)
Quarter: 2014Q1

REPORT INFORMATION
  Report Type: Spontaneous
  Country: US (occurrence: US)
  Receive Date: 20140203
  Receipt Date: 20140206
  Transmission Date: 20141002
  Serious: Yes (Hospitalization, Other)
  Sender: FDA-Public Use
  Company Number: US-BAXTER-2014BAX004239

PATIENT
  Sex: Male

DRUGS (4)
  1. DIANEAL LOW CALCIUM [Suspect]
     Indication: PERITONEAL DIALYSIS
     Route: 033
  2. DIANEAL LOW CALCIUM [Suspect]
     Indication: PERITONEAL DIALYSIS
     Route: 033
  3. FORTAZ [Suspect]
     Indication: PERITONITIS
     Dates: start: 201312, end: 201401
  4. ANCEF [Suspect]
     Indication: PERITONITIS
     Dates: start: 201312, end: 201401

REACTIONS (5)
  - Oesophageal ulcer [Recovered/Resolved]
  - Fatigue [Unknown]
  - Asthenia [Unknown]
  - Peritonitis [Recovered/Resolved]
  - Peritoneal dialysis complication [Recovered/Resolved]
